FAERS Safety Report 6439999-0 (Version None)
Quarter: 2009Q4

REPORT INFORMATION
  Report Type: 
  Country: None (occurrence: None)
  Receive Date: 20091112
  Receipt Date: 20091112
  Transmission Date: 20100525
  Serious: Yes (Life-Threatening)
  Sender: FDA-Public Use
  Company Number: None

PATIENT
  Age: 66 Year
  Sex: Male
  Weight: 105.2345 kg

DRUGS (2)
  1. ISOVUE-250 [Suspect]
     Indication: PROSTATE CANCER
     Dosage: 150 ML ONCE IV BOLUS
     Route: 040
     Dates: start: 20091027, end: 20091027
  2. GASTROGRAFIN [Suspect]
     Dosage: 500ML ONCE PO
     Route: 048
     Dates: start: 20091027, end: 20091027

REACTIONS (8)
  - ASTHENIA [None]
  - FAECAL INCONTINENCE [None]
  - FEELING HOT [None]
  - HYPERHIDROSIS [None]
  - HYPOTONIA [None]
  - MASKED FACIES [None]
  - UNRESPONSIVE TO STIMULI [None]
  - URINARY INCONTINENCE [None]
